FAERS Safety Report 8415406-3 (Version None)
Quarter: 2012Q2

REPORT INFORMATION
  Report Type: 
  Country: None (occurrence: None)
  Receive Date: 20120606
  Receipt Date: 20120529
  Transmission Date: 20120825
  Serious: Yes (Other)
  Sender: FDA-Public Use
  Company Number: US-BAYER-200835013NA

PATIENT
  Age: 62 Year
  Sex: Female
  Weight: 65.273 kg

DRUGS (2)
  1. PLACEBO (12741) (SORAFENIB) [Suspect]
     Indication: BREAST CANCER METASTATIC
     Dosage: 400 MG, BID
     Route: 048
     Dates: start: 20080408, end: 20080527
  2. GEMZAR [Suspect]
     Indication: BREAST CANCER METASTATIC
     Dosage: DAY 1 AND 8 OF EACH CYCLE
     Route: 042
     Dates: start: 20080408

REACTIONS (1)
  - PULMONARY EMBOLISM [None]
